FAERS Safety Report 8807876 (Version 1)
Quarter: 2012Q4

REPORT INFORMATION
  Report Type: Report from Study
  Country: CN (occurrence: CN)
  Receive Date: 20120925
  Receipt Date: 20120925
  Transmission Date: 20130627
  Serious: Yes (Other)
  Sender: FDA-Public Use
  Company Number: CN-ROCHE-1136651

PATIENT
  Sex: Male

DRUGS (3)
  1. PEGASYS [Suspect]
     Indication: HEPATITIS B
     Route: 058
     Dates: start: 20120913, end: 20120920
  2. PEGASYS [Suspect]
     Indication: HEPATITIS C
  3. RIBAVIRIN (NON-ROCHE/NON-COMPARATOR) [Concomitant]
     Indication: HEPATITIS C
     Route: 048
     Dates: start: 20120913, end: 20120920

REACTIONS (1)
  - Haemoglobinopathy [Unknown]
